FAERS Safety Report 9332506 (Version 1)
Quarter: 2013Q2

REPORT INFORMATION
  Report Type: Spontaneous
  Country: GB (occurrence: None)
  Receive Date: 20130603
  Receipt Date: 20130603
  Transmission Date: 20140414
  Serious: Yes (Other)
  Sender: FDA-Public Use
  Company Number: SYM-2013-04186

PATIENT
  Sex: Female

DRUGS (11)
  1. METRONIDAZOLE (NO PREF. NAME) [Suspect]
     Indication: PRODUCT USED FOR UNKNOWN INDICATION
  2. TRAMADOL (TRAMADOL) (TRAMADOL) [Suspect]
     Indication: ANALGESIC THERAPY
  3. ACTIQ [Suspect]
     Indication: PRODUCT USED FOR UNKNOWN INDICATION
     Route: 048
  4. EFFENTORA [Suspect]
     Indication: PRODUCT USED FOR UNKNOWN INDICATION
     Dosage: BU
     Route: 002
  5. TRIMETHOPRIM [Suspect]
     Indication: PRODUCT USED FOR UNKNOWN INDICATION
  6. ZORMORPH [Suspect]
  7. DUROGESIC [Suspect]
  8. FENTALIS [Suspect]
     Indication: PRODUCT USED FOR UNKNOWN INDICATION
  9. MEZOLAR MATRIX [Suspect]
     Indication: PRODUCT USED FOR UNKNOWN INDICATION
  10. ANTIHISTAMINES (ANTIHISTAMINES) [Concomitant]
  11. ABSTRAL [Suspect]
     Indication: PRODUCT USED FOR UNKNOWN INDICATION

REACTIONS (4)
  - Drug hypersensitivity [None]
  - Product adhesion issue [None]
  - Incorrect dose administered [None]
  - Product packaging issue [None]
